FAERS Safety Report 23707336 (Version 2)
Quarter: 2024Q2

REPORT INFORMATION
  Report Type: Spontaneous
  Country: BR (occurrence: BR)
  Receive Date: 20240404
  Receipt Date: 20240419
  Transmission Date: 20240716
  Serious: Yes (Hospitalization, Other)
  Sender: FDA-Public Use
  Company Number: BR-TAKEDA-2024TUS030306

PATIENT
  Age: 80 Year
  Sex: Female

DRUGS (8)
  1. PANTOPRAZOLE [Suspect]
     Active Substance: PANTOPRAZOLE
     Dosage: UNK
     Route: 065
  2. KEYTRUDA [Suspect]
     Active Substance: PEMBROLIZUMAB
     Dosage: 400 MILLIGRAM, Q6WEEKS
     Route: 042
     Dates: start: 202209
  3. PROPATYL NITRATE [Concomitant]
     Active Substance: PROPATYL NITRATE
     Dosage: 10 MILLIGRAM
  4. ATORVASTATIN [Concomitant]
     Active Substance: ATORVASTATIN
     Dosage: 40 MILLIGRAM
  5. CANDESARTAN CILEXETIL [Concomitant]
     Active Substance: CANDESARTAN CILEXETIL
     Dosage: 8 MILLIGRAM
  6. ASPIRIN [Concomitant]
     Active Substance: ASPIRIN
     Dosage: 100 MILLIGRAM
  7. LEVOTHYROXINE [Concomitant]
     Active Substance: LEVOTHYROXINE\LEVOTHYROXINE SODIUM
     Dosage: 88 MICROGRAM
  8. EZETIMIBE [Concomitant]
     Active Substance: EZETIMIBE
     Dosage: 10 MILLIGRAM

REACTIONS (19)
  - Mucosal inflammation [Recovered/Resolved]
  - Myocardial ischaemia [Unknown]
  - Hypothyroidism [Recovered/Resolved]
  - Head and neck cancer metastatic [Unknown]
  - Metastases to lung [Unknown]
  - Pancytopenia [Unknown]
  - Cardiac disorder [Unknown]
  - Pain [Recovered/Resolved]
  - Infected neoplasm [Unknown]
  - Oropharyngeal cancer [Recovered/Resolved]
  - Dyslipidaemia [Recovered/Resolved]
  - Blood thyroid stimulating hormone abnormal [Not Recovered/Not Resolved]
  - Toxicity to various agents [Unknown]
  - Fibrosis [Unknown]
  - Dehydration [Unknown]
  - Face oedema [Unknown]
  - Dysphagia [Unknown]
  - Asthenia [Unknown]
  - Cardiac disorder [Recovered/Resolved]

NARRATIVE: CASE EVENT DATE: 20220908
